FAERS Safety Report 11663633 (Version 1)
Quarter: 2015Q4

REPORT INFORMATION
  Report Type: Report from Study
  Country: GB (occurrence: GB)
  Receive Date: 20151027
  Receipt Date: 20151027
  Transmission Date: 20160304
  Serious: Yes (Other)
  Sender: FDA-Public Use
  Company Number: PHFR2015GB007868

PATIENT
  Age: 47 Year
  Sex: Female

DRUGS (1)
  1. GILENYA [Suspect]
     Active Substance: FINGOLIMOD HYDROCHLORIDE
     Indication: MULTIPLE SCLEROSIS
     Dosage: 0.5 MG, UNK
     Route: 048
     Dates: start: 20151019

REACTIONS (3)
  - Dizziness [Recovered/Resolved]
  - Palpitations [Recovered/Resolved]
  - Atrioventricular block [Recovered/Resolved]

NARRATIVE: CASE EVENT DATE: 20151019
